FAERS Safety Report 5469115-3 (Version None)
Quarter: 2007Q3

REPORT INFORMATION
  Report Type: 
  Country: None (occurrence: None)
  Receive Date: 20070927
  Receipt Date: 20070925
  Transmission Date: 20080115
  Serious: Yes (Death, Disabling)
  Sender: FDA-Public Use
  Company Number: PHBS2007FI08268

PATIENT
  Age: 65 Year
  Sex: Male

DRUGS (2)
  1. STALEVO 100 [Suspect]
     Indication: PARKINSON'S DISEASE
     Dosage: 600/300/75 MG/D
     Route: 048
     Dates: start: 20070401, end: 20070507
  2. FERROUS GLYCINE SULFATE [Concomitant]
     Indication: ANAEMIA
     Route: 048

REACTIONS (3)
  - DEATH [None]
  - DIPLOPIA [None]
  - TREMOR [None]
